FAERS Safety Report 8470455-4 (Version None)
Quarter: 2012Q2

REPORT INFORMATION
  Report Type: 
  Country: None (occurrence: None)
  Receive Date: 20120627
  Receipt Date: 20120619
  Transmission Date: 20120825
  Serious: Yes (Hospitalization, Other)
  Sender: FDA-Public Use
  Company Number: US-US-EMD SERONO, INC.-7141914

PATIENT
  Sex: Female

DRUGS (1)
  1. REBIF [Suspect]
     Indication: MULTIPLE SCLEROSIS
     Route: 058
     Dates: end: 20110301

REACTIONS (4)
  - HAEMORRHAGE [None]
  - SCIATIC NERVE INJURY [None]
  - POSTOPERATIVE ADHESION [None]
  - COLON CANCER [None]
